FAERS Safety Report 6355805-7 (Version None)
Quarter: 2009Q3

REPORT INFORMATION
  Report Type: 
  Country: None (occurrence: None)
  Receive Date: 20090915
  Receipt Date: 20071128
  Transmission Date: 20100115
  Serious: Yes (Death)
  Sender: FDA-Public Use
  Company Number: US-ASTRAZENECA-2006UW22798

PATIENT
  Age: 18511 Day
  Sex: Male

DRUGS (10)
  1. SEROQUEL [Suspect]
     Indication: DEPRESSION
     Route: 048
     Dates: start: 20050118
  2. SEROQUEL [Suspect]
     Indication: ANXIETY
     Route: 048
     Dates: start: 20050118
  3. SEROQUEL [Suspect]
     Dosage: 100 MG - 300 MG
     Route: 048
     Dates: start: 20050118
  4. SEROQUEL [Suspect]
     Dosage: 100 MG - 300 MG
     Route: 048
     Dates: start: 20050118
  5. RISPERDAL [Concomitant]
     Dosage: 0.5 MG - 2 MG
     Route: 048
     Dates: start: 20030525
  6. LEXAPRO [Concomitant]
     Dosage: 10 MG - 20 MG
     Route: 048
     Dates: start: 20021219
  7. ZOLOFT [Concomitant]
     Dosage: 25 MG - 100 MG
     Route: 048
     Dates: start: 20040115
  8. VISTARIL [Concomitant]
     Indication: NERVOUSNESS
     Dosage: 50 MG - 150 MG
     Route: 048
     Dates: start: 20050804
  9. ATENOLOL [Concomitant]
     Route: 048
     Dates: start: 20060426
  10. PROMETHAZINE [Concomitant]
     Route: 048
     Dates: start: 20060428

REACTIONS (2)
  - DEATH [None]
  - DIABETES MELLITUS [None]
